FAERS Safety Report 6008915-8 (Version None)
Quarter: 2008Q4

REPORT INFORMATION
  Report Type: 
  Country: None (occurrence: None)
  Receive Date: 20081216
  Receipt Date: 20081201
  Transmission Date: 20090506
  Serious: Yes (Other)
  Sender: FDA-Public Use
  Company Number: US-1167994

PATIENT
  Age: 49 Year
  Sex: Male

DRUGS (5)
  1. IOPIDINE [Suspect]
     Indication: INTRAOCULAR PRESSURE INCREASED
     Dosage: 1 GTT OU X 1 OPHTHALMIC, (1 GTT OU X 1 OPHTHALMIC)
     Route: 047
     Dates: start: 20000924, end: 20000924
  2. IOPIDINE [Suspect]
     Indication: INTRAOCULAR PRESSURE INCREASED
     Dosage: 1 GTT OU X 1 OPHTHALMIC, (1 GTT OU X 1 OPHTHALMIC)
     Route: 047
     Dates: start: 20070324, end: 20070324
  3. TRAVATAN [Suspect]
     Indication: INTRAOCULAR PRESSURE INCREASED
     Dosage: 1 GTT OU Q HS, OPHTHALMIC
     Route: 047
     Dates: start: 20070324
  4. TIMOLOL MALEATE [Suspect]
     Indication: INTRAOCULAR PRESSURE INCREASED
     Dosage: 1 GTT OU QD, OPHTHALMIC
     Route: 047
     Dates: start: 20000924
  5. BRIMONIDINE TARTRATE [Concomitant]

REACTIONS (4)
  - MACULAR DEGENERATION [None]
  - PUPILLARY REFLEX IMPAIRED [None]
  - TREATMENT NONCOMPLIANCE [None]
  - VISION BLURRED [None]
